FAERS Safety Report 24271145 (Version 1)
Quarter: 2024Q3

REPORT INFORMATION
  Report Type: Spontaneous
  Country: IT (occurrence: IT)
  Receive Date: 20240831
  Receipt Date: 20240831
  Transmission Date: 20241017
  Serious: Yes (Death, Other)
  Sender: AMGEN
  Company Number: IT-AMGEN-ITASP2024168466

PATIENT

DRUGS (6)
  1. FILGRASTIM [Suspect]
     Active Substance: FILGRASTIM
     Indication: Prophylaxis
     Dosage: UNK, AFTER CHEMO, SIX CONSECUTIVE DAYS
     Route: 065
  2. FLUDARABINE [Concomitant]
     Active Substance: FLUDARABINE PHOSPHATE
     Dosage: 25 MILLIGRAM/SQ. METER
     Route: 042
  3. CYCLOPHOSPHAMIDE [Concomitant]
     Active Substance: CYCLOPHOSPHAMIDE
     Dosage: 250 MILLIGRAM/SQ. METER, DAYS 1-3
     Route: 048
  4. LENALIDOMIDE [Concomitant]
     Active Substance: LENALIDOMIDE
     Dosage: 2.5 MILLIGRAM, 5 MG, 10 MG AND 15 MG QD (D1-D4)
  5. ASPIRIN [Concomitant]
     Active Substance: ASPIRIN
  6. ALLOPURINOL [Concomitant]
     Active Substance: ALLOPURINOL

REACTIONS (23)
  - Death [Fatal]
  - Richter^s syndrome [Fatal]
  - Chronic lymphocytic leukaemia [Fatal]
  - Infection [Fatal]
  - Neutropenia [Unknown]
  - Pneumonia [Unknown]
  - Varicella zoster virus infection [Unknown]
  - Craniocerebral injury [Unknown]
  - Intestinal obstruction [Unknown]
  - Squamous cell carcinoma [Unknown]
  - Myelodysplastic syndrome [Unknown]
  - Tumour flare [Unknown]
  - Tumour lysis syndrome [Unknown]
  - Tremor [Unknown]
  - Drug ineffective [Unknown]
  - Arrhythmia [Unknown]
  - Anaemia [Unknown]
  - Fatigue [Unknown]
  - Thrombocytopenia [Unknown]
  - Pyrexia [Unknown]
  - Nausea [Unknown]
  - Constipation [Unknown]
  - Muscle spasms [Unknown]
